FAERS Safety Report 6663610-7 (Version None)
Quarter: 2010Q2

REPORT INFORMATION
  Report Type: 
  Country: None (occurrence: None)
  Receive Date: 20100401
  Receipt Date: 20100326
  Transmission Date: 20101027
  Serious: Yes (Hospitalization)
  Sender: FDA-Public Use
  Company Number: FR-BRISTOL-MYERS SQUIBB COMPANY-15039522

PATIENT
  Age: 75 Year
  Sex: Male

DRUGS (13)
  1. COUMADIN [Suspect]
     Dates: start: 20091113, end: 20100124
  2. BACTRIM DS [Suspect]
     Dates: start: 20100111, end: 20100125
  3. ALLOPURINOL [Concomitant]
     Dosage: TABS
     Dates: start: 20091113
  4. LEXOMIL [Concomitant]
     Dates: start: 20091113
  5. IMOVANE [Concomitant]
     Dates: start: 20091113, end: 20091213
  6. KOREC [Concomitant]
     Dates: start: 20091113, end: 20100124
  7. LASIX [Concomitant]
     Dates: start: 20091113
  8. BRONCHODUAL [Concomitant]
     Dosage: 1DF-1PUFF,100 ?G/40 ?G
  9. SPIRIVA [Concomitant]
     Dosage: 1DF-1PUFF,18 ?G
     Dates: start: 20091113
  10. CONTRAMAL [Concomitant]
     Dates: start: 20091113
  11. KAYEXALATE [Concomitant]
  12. SUCRALFATE [Concomitant]
  13. OMEPRAZOLE [Concomitant]

REACTIONS (4)
  - ANAEMIA [None]
  - INTERNATIONAL NORMALISED RATIO INCREASED [None]
  - MELAENA [None]
  - RENAL FAILURE [None]
